FAERS Safety Report 5191209-0 (Version None)
Quarter: 2006Q4

REPORT INFORMATION
  Report Type: 
  Country: None (occurrence: None)
  Receive Date: 20061218
  Receipt Date: 20061204
  Transmission Date: 20070319
  Serious: Yes (Other)
  Sender: FDA-Public Use
  Company Number: GXKR2006SE04595

PATIENT
  Age: 73 Year
  Sex: Male

DRUGS (1)
  1. RIFAMPICIN [Suspect]
     Indication: INFECTION
     Dosage: ORAL
     Route: 048

REACTIONS (2)
  - LIVER DISORDER [None]
  - NEUROPATHY [None]
